FAERS Safety Report 18894043 (Version 2)
Quarter: 2021Q1

REPORT INFORMATION
  Report Type: Report from Study
  Country: GB (occurrence: GB)
  Receive Date: 20210215
  Receipt Date: 20210326
  Transmission Date: 20210420
  Serious: Yes (Other)
  Sender: FDA-Public Use
  Company Number: NVSC2021GB031463

PATIENT
  Sex: Female

DRUGS (1)
  1. HYRIMOZ [Suspect]
     Active Substance: ADALIMUMAB-ADAZ
     Indication: RHEUMATOID ARTHRITIS
     Dosage: 40 MG (40MG/0.8ML, EOW)
     Route: 065
     Dates: start: 20190620

REACTIONS (2)
  - Giant cell arteritis [Not Recovered/Not Resolved]
  - Pain [Not Recovered/Not Resolved]
